FAERS Safety Report 9732774 (Version 3)
Quarter: 2014Q1

REPORT INFORMATION
  Report Type: Spontaneous
  Country: US (occurrence: US)
  Receive Date: 20131204
  Receipt Date: 20140110
  Transmission Date: 20141002
  Serious: Yes (Disabling, Other)
  Sender: FDA-Public Use
  Company Number: US-GILEAD-2013-0088967

PATIENT
  Age: 67 Year
  Sex: Female

DRUGS (14)
  1. LETAIRIS [Suspect]
     Indication: PULMONARY HYPERTENSION
     Dosage: 5 MG, QD
     Route: 048
     Dates: start: 20131010, end: 20131017
  2. LETAIRIS [Suspect]
     Indication: ESSENTIAL HYPERTENSION
  3. LETAIRIS [Suspect]
     Indication: CARDIAC DISORDER
  4. REVATIO [Concomitant]
  5. LASIX                              /00032601/ [Concomitant]
  6. LEVOTHROID [Concomitant]
  7. TIKOSYN [Concomitant]
  8. ONDANSETRON [Concomitant]
  9. ESTRADIOL [Concomitant]
  10. VICODIN [Concomitant]
  11. TRAMADOL [Concomitant]
  12. TOPIRAMATE [Concomitant]
  13. COUMADIN                           /00014802/ [Concomitant]
  14. ZESTRIL [Concomitant]

REACTIONS (9)
  - Aphagia [Recovered/Resolved]
  - Cognitive disorder [Recovered/Resolved]
  - Dysstasia [Recovered/Resolved]
  - Activities of daily living impaired [Recovered/Resolved]
  - Malaise [Unknown]
  - Arthralgia [Recovered/Resolved]
  - Muscular weakness [Recovered/Resolved]
  - Cognitive disorder [Unknown]
  - Oedema [Unknown]
